FAERS Safety Report 24083107 (Version 1)
Quarter: 2024Q3

REPORT INFORMATION
  Report Type: Spontaneous
  Country: GB (occurrence: GB)
  Receive Date: 20240712
  Receipt Date: 20240712
  Transmission Date: 20241017
  Serious: Yes (Hospitalization, Other)
  Sender: RANBAXY
  Company Number: GB-SUN PHARMACEUTICAL INDUSTRIES LTD-2024RR-456101

PATIENT
  Age: 75 Year

DRUGS (35)
  1. VENLAFAXINE [Suspect]
     Active Substance: VENLAFAXINE HYDROCHLORIDE
     Indication: Product used for unknown indication
     Dosage: 75 MILLIGRAM, DAILY
     Route: 065
  2. VENLAFAXINE [Suspect]
     Active Substance: VENLAFAXINE HYDROCHLORIDE
     Dosage: 150 MILLIGRAM, DAILY
     Route: 065
  3. OLANZAPINE [Suspect]
     Active Substance: OLANZAPINE
     Indication: Product used for unknown indication
     Dosage: UNK
     Route: 065
  4. OLANZAPINE [Suspect]
     Active Substance: OLANZAPINE
     Dosage: 100 MILLIGRAM
     Route: 065
  5. SENNA [Concomitant]
     Active Substance: SENNA LEAF\SENNOSIDES\SENNOSIDES A AND B
     Indication: Product used for unknown indication
     Dosage: 15 MILLIGRAM, DAILY
     Route: 065
  6. Zerobase [Concomitant]
     Indication: Product used for unknown indication
     Dosage: UNK
     Route: 065
  7. E 45 cream [Concomitant]
     Indication: Product used for unknown indication
     Dosage: AS DIRECTED
     Route: 065
  8. Micralax Micro-enema 5 ml [Concomitant]
     Indication: Product used for unknown indication
     Dosage: ADMINISTER THE CONTENTS OF ONE MICRO-ENEMA RECTALLY AS DIRECTED DAILY
     Route: 054
  9. CALCIUM CARBONATE\SODIUM ALGINATE\SODIUM BICARBONATE [Concomitant]
     Active Substance: CALCIUM CARBONATE\SODIUM ALGINATE\SODIUM BICARBONATE
     Indication: Product used for unknown indication
     Dosage: 10-20 ML TO BE TAKEN AFTER MEALS AND AT BEDTIME WHEN REQUIRED
     Route: 065
  10. Salamol 100 micrograms / dose inhaler CFC free [Concomitant]
     Indication: Product used for unknown indication
     Dosage: ONE OR TWO PUFFS TO BE INHALED UP TO FOUR TIMES A DAY VIA SPACER DEVICE
     Route: 055
  11. PARAFFIN\WAX, EMULSIFYING [Concomitant]
     Active Substance: PARAFFIN\WAX, EMULSIFYING
     Indication: Product used for unknown indication
     Dosage: 1 DOSAGE FORM, BID
     Route: 065
  12. Hypodermic insulin needles for pre-filled / reusable pen injectors scr [Concomitant]
     Indication: Product used for unknown indication
     Dosage: AS DIRECTED
     Route: 065
  13. Morphine 10 mg modified-release tablets [Concomitant]
     Indication: Product used for unknown indication
     Dosage: 20 MILLIGRAM, QOD
     Route: 065
  14. DERMOL [Concomitant]
     Active Substance: BENZALKONIUM CHLORIDE\CHLORHEXIDINE HYDROCHLORIDE\ISOPROPYL MYRISTATE\PARAFFIN
     Indication: Product used for unknown indication
     Dosage: APPLY TWICE A DAY MORNING AND NIGHT WHEN REQUIRED AND USE AS A SOAP SUBSTITUTE
     Route: 065
  15. Edoxaban 60 mg tablets [Concomitant]
     Indication: Product used for unknown indication
     Dosage: MORNING
     Route: 065
  16. TILLOMED LABS FAMOTIDINE TABLETS 40MG [Concomitant]
     Indication: Product used for unknown indication
     Dosage: AT NIGHT
     Route: 065
  17. GlucoRx HCT Glucose testing strips [Concomitant]
     Indication: Product used for unknown indication
     Dosage: AS DIRECTED
     Route: 065
  18. Calcichew-D3 Forte chewable tablets [Concomitant]
     Indication: Product used for unknown indication
     Dosage: 1 DOSAGE FORM, QOD
     Route: 065
  19. Fluticasone propionate 50 micrograms / dose nasal spray [Concomitant]
     Indication: Product used for unknown indication
     Dosage: ONE SPRAY TO BE USED IN EACH NOSTRIL ONCE A DAY
     Route: 045
  20. FreeStyle Libre 2 Sensor [Concomitant]
     Indication: Product used for unknown indication
     Dosage: UNK
     Route: 065
  21. NovoRapid FlexPen 100 units / ml solution for injection 3 ml pre-fille [Concomitant]
     Indication: Product used for unknown indication
     Dosage: ASD BY DIABETIC SPECIALIST NURSE SC 10,8,6 WITH MEALS
     Route: 058
  22. PROMETHAZINE HYDROCHLORIDE [Concomitant]
     Active Substance: PROMETHAZINE HYDROCHLORIDE
     Indication: Product used for unknown indication
     Dosage: 25 MG TABLETS 1 OR 2 TO BE TAKEN AT NIGHT
     Route: 065
  23. GlucoRx lancets 0.31 mm / 30 gauge [Concomitant]
     Indication: Product used for unknown indication
     Dosage: AS DIRECTED
     Route: 065
  24. Macrogol compound oral powder sachets NPF sugar free [Concomitant]
     Indication: Product used for unknown indication
     Dosage: DISSOLVE CONTENTS OF ONE SACHET IN HALF A GLASS ( 125 ML) OF WATER AND TAKE TWICE EACH DAY
     Route: 065
  25. Pregabalin 150 mg capsules [Concomitant]
     Indication: Product used for unknown indication
     Dosage: 1 DOSAGE FORM
     Route: 065
  26. Glyceryl trinitrate 400 micrograms / dose pump sublingual spray [Concomitant]
     Indication: Product used for unknown indication
     Dosage: SPRAY ONE OR TWO DOSES UNDER TONGUE AND THEN CLOSE MOUTH AS DIRECTED
     Route: 065
  27. MONTELUKAST SODIUM [Concomitant]
     Active Substance: MONTELUKAST SODIUM
     Indication: Product used for unknown indication
     Dosage: NIGHT
     Route: 065
  28. CETIRIZINE HYDROCHLORIDE [Concomitant]
     Active Substance: CETIRIZINE HYDROCHLORIDE
     Indication: Product used for unknown indication
     Dosage: 1 DOSAGE FORM, DAILY
     Route: 065
  29. Estriol 0.01% vaginal cream with applicator [Concomitant]
     Indication: Product used for unknown indication
     Dosage: TWICE WEEKLY FOR UP TO 3 MTHS
     Route: 065
  30. Nystatin 100,000 units / ml oral suspension [Concomitant]
     Indication: Product used for unknown indication
     Dosage: 1 ML TO BE DROPPED INTO THE MOUTH FOUR TIMES A DAY.
     Route: 065
  31. Tresiba FlexTouch 200 units / ml solution for injection 3 ml pre-fille [Concomitant]
     Indication: Product used for unknown indication
     Dosage: ACCORDING TO REQUIREMENTS SC 16 UNIT EVENING X OP N
     Route: 058
  32. MOMETASONE [Concomitant]
     Active Substance: MOMETASONE
     Indication: Product used for unknown indication
     Dosage: APPLY THINLY EVERY MORNING
     Route: 065
  33. Docusate 100 mg capsules [Concomitant]
     Indication: Product used for unknown indication
     Dosage: 100 MILLIGRAM, QOD
     Route: 065
  34. Trimbow 172 / 5 / 9 micrograms / dose inhaler [Concomitant]
     Indication: Product used for unknown indication
     Dosage: TWO PUFFS TO BE INHALED TWICE A DAY X 92 DOSES VIA SPACER
     Route: 055
  35. ACETAMINOPHEN [Concomitant]
     Active Substance: ACETAMINOPHEN
     Indication: Product used for unknown indication
     Dosage: ONE OR TWO TO BE TAKEN FOUR TIMES DAILY AS REQUIRED
     Route: 065

REACTIONS (1)
  - Hypertonia [Unknown]
